FAERS Safety Report 4483223-5 (Version None)
Quarter: 2004Q3

REPORT INFORMATION
  Report Type: 
  Country: None (occurrence: None)
  Receive Date: 20040921
  Receipt Date: 20040623
  Transmission Date: 20050211
  Serious: Yes (Hospitalization)
  Sender: FDA-Public Use
  Company Number: 163-20785-04060649

PATIENT
  Age: 20 Year
  Sex: Female

DRUGS (2)
  1. THALOMID [Suspect]
     Indication: COLORECTAL CANCER METASTATIC
     Dosage: 400 MG, QD, ORAL
     Route: 048
     Dates: start: 20040215
  2. XELODA [Suspect]
     Indication: COLORECTAL CANCER METASTATIC
     Dosage: 1750MG/M2, DAYS 1-14 OF 21 DAYC CYCLE
     Dates: start: 20040215

REACTIONS (1)
  - OEDEMA PERIPHERAL [None]
